APPROVED DRUG PRODUCT: NABUMETONE
Active Ingredient: NABUMETONE
Strength: 750MG
Dosage Form/Route: TABLET;ORAL
Application: A091083 | Product #002 | TE Code: AB
Applicant: WATSON LABORATORIES INC
Approved: Jun 13, 2011 | RLD: No | RS: No | Type: RX